FAERS Safety Report 9197264 (Version 1)
Quarter: 2013Q1

REPORT INFORMATION
  Report Type: Spontaneous
  Country: US (occurrence: None)
  Receive Date: 20120709
  Receipt Date: 20120709
  Transmission Date: 20140127
  Serious: No
  Sender: FDA-Public Use
  Company Number: 2012HGS-003570

PATIENT
  Age: 65 Year
  Sex: Female
  Weight: 47.17 kg

DRUGS (10)
  1. BENLYSTA [Suspect]
     Indication: SYSTEMIC LUPUS ERYTHEMATOSUS
     Dosage: 1IN 28 D
     Route: 041
     Dates: start: 20120419
  2. HYDROXYCHLOROQUINE (HYDROXYCHLOROQUINE) (HYDROXYCHLOROQUINE) [Concomitant]
  3. PREDNISONE (PREDNISONE) (PREDNISONE) [Concomitant]
  4. METFORMIN (METFORMIN) (METFORMIN) [Concomitant]
  5. FOLIC ACID (FOLIC ACID) (FOLIC ACID) [Concomitant]
  6. METHOTREXATE ( METHOTREXATE) (METHOTREXATE) [Concomitant]
  7. CITALOPRAM (CITALOPRAM) (CITALOPRAM) [Concomitant]
  8. LEVOTHYROXINE (LEVOTHYROXINE) (LEVOTHYROXINE) [Concomitant]
  9. ESTRADIOL (ESTRADIOL) (ESTRADIOL) [Concomitant]
  10. OMEPRAZOLE (OMEPRAZOLE) (OMEPRAZOLE) [Concomitant]

REACTIONS (7)
  - Dizziness [None]
  - Chills [None]
  - Arthralgia [None]
  - Neck pain [None]
  - Back pain [None]
  - Lip swelling [None]
  - Pruritus [None]
